FAERS Safety Report 6546402-9 (Version None)
Quarter: 2010Q1

REPORT INFORMATION
  Report Type: 
  Country: None (occurrence: None)
  Receive Date: 20100119
  Receipt Date: 20100104
  Transmission Date: 20100710
  Serious: Yes (Death, Hospitalization)
  Sender: FDA-Public Use
  Company Number: 2009AC000105

PATIENT
  Age: 49 Year
  Sex: Male

DRUGS (19)
  1. DIGOXIN [Suspect]
     Dosage: 0.125 MG;QD;PO
     Route: 048
     Dates: start: 20070719
  2. ALDACTONE [Concomitant]
  3. LASIX [Concomitant]
  4. TOPROL-XL [Concomitant]
  5. NITROGLYCERIN [Concomitant]
  6. PRAVACHOL [Concomitant]
  7. GLUCOTROL [Concomitant]
  8. GLUCOPHAGE [Concomitant]
  9. NEXIUM [Concomitant]
  10. NIASPAN [Concomitant]
  11. LEVAQUIN [Concomitant]
  12. DARVOCET [Concomitant]
  13. ZESTRIL [Concomitant]
  14. COUMADIN [Concomitant]
  15. NORVASC [Concomitant]
  16. LISINOPRIL [Concomitant]
  17. METFORMIN [Concomitant]
  18. POTASSIUM [Concomitant]
  19. GLIPIZIDE [Concomitant]

REACTIONS (14)
  - ACUTE MYOCARDIAL INFARCTION [None]
  - ATRIAL FIBRILLATION [None]
  - CARDIAC FAILURE [None]
  - DEVICE RELATED INFECTION [None]
  - DYSPNOEA EXERTIONAL [None]
  - FLUID OVERLOAD [None]
  - FLUID RETENTION [None]
  - INJURY [None]
  - ISCHAEMIA [None]
  - PAIN [None]
  - PRURITUS [None]
  - PULMONARY HYPERTENSION [None]
  - SKIN HYPERPIGMENTATION [None]
  - WEIGHT INCREASED [None]
